FAERS Safety Report 5833196-5 (Version None)
Quarter: 2008Q3

REPORT INFORMATION
  Report Type: 
  Country: None (occurrence: None)
  Receive Date: 20080805
  Receipt Date: 20080729
  Transmission Date: 20090109
  Serious: No
  Sender: FDA-Public Use
  Company Number: GB-ELI_LILLY_AND_COMPANY-GB200808000128

PATIENT
  Age: 22 Year
  Sex: Female

DRUGS (2)
  1. ZYPREXA [Suspect]
     Dosage: 25 MG, DAILY (1/D)
  2. ZYPREXA [Suspect]
     Dosage: 15 MG, DAILY (1/D)

REACTIONS (1)
  - NEUTROPENIA [None]
